FAERS Safety Report 21589529 (Version 1)
Quarter: 2022Q4

REPORT INFORMATION
  Report Type: Spontaneous
  Country: US (occurrence: None)
  Receive Date: 20221111
  Receipt Date: 20221111
  Transmission Date: 20230112
  Serious: Yes (Hospitalization)
  Sender: FDA-Public Use
  Company Number: None

PATIENT
  Age: 63 Year
  Sex: Male
  Weight: 80.1 kg

DRUGS (1)
  1. BEBTELOVIMAB [Suspect]
     Active Substance: BEBTELOVIMAB
     Indication: COVID-19
     Dosage: FREQUENCY : ONCE;?
     Route: 042
     Dates: start: 20221110, end: 20221110

REACTIONS (8)
  - Gait disturbance [None]
  - Dizziness [None]
  - Disorientation [None]
  - Multiple sclerosis [None]
  - Blood pressure decreased [None]
  - Heart rate decreased [None]
  - Gait inability [None]
  - Speech disorder [None]

NARRATIVE: CASE EVENT DATE: 20221110
